FAERS Safety Report 10429223 (Version 1)
Quarter: 2014Q3

REPORT INFORMATION
  Report Type: Spontaneous
  Country: US (occurrence: US)
  Receive Date: 20140904
  Receipt Date: 20140904
  Transmission Date: 20150326
  Serious: No
  Sender: FDA-Public Use
  Company Number: US-009507513-1409USA001225

PATIENT
  Age: 22 Year
  Sex: Female
  Weight: 58.96 kg

DRUGS (2)
  1. NUVARING [Suspect]
     Active Substance: ETHINYL ESTRADIOL\ETONOGESTREL
     Indication: CONTRACEPTION
     Dosage: 1 RING/3 WEEKS/1 WEEK OUT
     Route: 067
     Dates: end: 20140831
  2. DALAY [Concomitant]
     Dosage: UNK

REACTIONS (1)
  - Menstruation irregular [Unknown]

NARRATIVE: CASE EVENT DATE: 20140902
